FAERS Safety Report 5387097-X (Version None)
Quarter: 2007Q3

REPORT INFORMATION
  Report Type: 
  Country: None (occurrence: None)
  Receive Date: 20070711
  Receipt Date: 20070702
  Transmission Date: 20080115
  Serious: Yes (Hospitalization)
  Sender: FDA-Public Use
  Company Number: 2007BI007412

PATIENT
  Age: 62 Year
  Sex: Male

DRUGS (1)
  1. NATALIZUMAB [Suspect]
     Indication: MULTIPLE SCLEROSIS
     Dosage: 300 MG; QM; IV
     Route: 042
     Dates: start: 20061030

REACTIONS (5)
  - DISEASE RECURRENCE [None]
  - HERPES ZOSTER [None]
  - MUSCLE SPASTICITY [None]
  - TINEA INFECTION [None]
  - TREATMENT FAILURE [None]
